FAERS Safety Report 7988018-3 (Version None)
Quarter: 2011Q4

REPORT INFORMATION
  Report Type: 
  Country: None (occurrence: None)
  Receive Date: 20111216
  Receipt Date: 20101129
  Transmission Date: 20120403
  Serious: No
  Sender: FDA-Public Use
  Company Number: US-BRISTOL-MYERS SQUIBB COMPANY-15410533

PATIENT
  Age: 59 Year
  Sex: Female

DRUGS (7)
  1. TRAZODONE HCL [Concomitant]
  2. COGENTIN [Concomitant]
  3. LAMICTAL [Concomitant]
  4. LITHIUM CARBONATE [Concomitant]
  5. METFORMIN HCL [Concomitant]
  6. ABILIFY [Suspect]
     Indication: BIPOLAR DISORDER
     Dosage: RECEIVED FOR LAST 4-5 MONTHS
     Dates: start: 20100101
  7. TRILIPIX [Concomitant]

REACTIONS (2)
  - WEIGHT INCREASED [None]
  - OEDEMA PERIPHERAL [None]
